FAERS Safety Report 20136097 (Version 1)
Quarter: 2021Q4

REPORT INFORMATION
  Report Type: Report from Study
  Country: US (occurrence: US)
  Receive Date: 20211201
  Receipt Date: 20211201
  Transmission Date: 20220304
  Serious: Yes (Other)
  Sender: FDA-Public Use
  Company Number: US-TAKEDA-2021TUS037889

PATIENT
  Sex: Male
  Weight: 23.58 kg

DRUGS (9)
  1. HUMAN IMMUNOGLOBULIN G [Suspect]
     Active Substance: HUMAN IMMUNOGLOBULIN G
     Indication: Congenital hypogammaglobulinaemia
     Dosage: 4 GRAM, 1/WEEK
     Route: 058
     Dates: start: 20210320
  2. HUMAN IMMUNOGLOBULIN G [Suspect]
     Active Substance: HUMAN IMMUNOGLOBULIN G
     Dosage: 4 GRAM, QD
     Route: 058
     Dates: start: 20210320
  3. ACETAMINOPHEN [Concomitant]
     Active Substance: ACETAMINOPHEN
     Route: 065
  4. DIPHENHYDRAMINE [Concomitant]
     Active Substance: DIPHENHYDRAMINE
     Route: 065
  5. EPINEPHRINE [Concomitant]
     Active Substance: EPINEPHRINE
     Route: 065
  6. Lmx [Concomitant]
     Route: 065
  7. IBUPROFEN [Concomitant]
     Active Substance: IBUPROFEN
     Route: 065
  8. VITAMINS [Concomitant]
     Active Substance: VITAMINS
     Route: 065
  9. VITAMIN D [Concomitant]
     Active Substance: VITAMIN D NOS
     Route: 065

REACTIONS (2)
  - COVID-19 pneumonia [Unknown]
  - Product dose omission issue [Unknown]
